FAERS Safety Report 22160335 (Version 1)
Quarter: 2023Q1

REPORT INFORMATION
  Report Type: Report from Study
  Country: MX (occurrence: MX)
  Receive Date: 20230331
  Receipt Date: 20230331
  Transmission Date: 20230418
  Serious: Yes (Other)
  Sender: FDA-Public Use
  Company Number: MX-002147023-NVSC2023MX073350

PATIENT
  Sex: Female

DRUGS (2)
  1. DIOVAN [Suspect]
     Active Substance: VALSARTAN
     Indication: Hypertension
     Dosage: 2 DOSAGE FORM, QD (80 MG) (BY MOUTH) STARTED APPROXIMATELY 3 YEARS AGO
     Route: 048
  2. DIOVAN [Suspect]
     Active Substance: VALSARTAN
     Dosage: 1 DOSAGE FORM, QD (320 MG) (BY MOUTH) STARTED 2 AND A HALF YEARS AGO
     Route: 048

REACTIONS (3)
  - Cataract [Recovered/Resolved with Sequelae]
  - Vitreous floaters [Unknown]
  - Fall [Unknown]
